FAERS Safety Report 5258682-0 (Version None)
Quarter: 2007Q1

REPORT INFORMATION
  Report Type: 
  Country: None (occurrence: None)
  Receive Date: 20070308
  Receipt Date: 20070305
  Transmission Date: 20070707
  Serious: Yes (Life-Threatening)
  Sender: FDA-Public Use
  Company Number: 2007AP01150

PATIENT
  Age: 74 Year
  Sex: Male
  Weight: 60 kg

DRUGS (5)
  1. CASODEX [Suspect]
     Indication: PROSTATE CANCER
     Route: 048
     Dates: start: 20070130, end: 20070216
  2. ZOLADEX [Suspect]
     Indication: PROSTATE CANCER
     Route: 058
     Dates: start: 20070213, end: 20070213
  3. THIATON [Concomitant]
     Route: 048
     Dates: end: 20070216
  4. GASCON [Concomitant]
     Route: 048
     Dates: end: 20070216
  5. HALCION [Concomitant]
     Route: 048
     Dates: end: 20070216

REACTIONS (1)
  - PITUITARY HAEMORRHAGE [None]
